FAERS Safety Report 13051049 (Version 3)
Quarter: 2017Q1

REPORT INFORMATION
  Report Type: Spontaneous
  Country: US (occurrence: US)
  Receive Date: 20161221
  Receipt Date: 20170113
  Transmission Date: 20170428
  Serious: No
  Sender: FDA-Public Use
  Company Number: US-PFIZER INC-2016586193

PATIENT
  Age: 41 Year
  Sex: Male

DRUGS (1)
  1. DEPO-TESTOSTERONE [Suspect]
     Active Substance: TESTOSTERONE CYPIONATE
     Indication: ANDROGEN DEFICIENCY
     Dosage: 0.25 ML, UNK
     Route: 030

REACTIONS (3)
  - Rash [Unknown]
  - Poor quality drug administered [Unknown]
  - Product deposit [Unknown]
